FAERS Safety Report 4875357-8 (Version None)
Quarter: 2006Q1

REPORT INFORMATION
  Report Type: 
  Country: None (occurrence: None)
  Receive Date: 20060109
  Receipt Date: 20051005
  Transmission Date: 20060701
  Serious: Yes (Hospitalization)
  Sender: FDA-Public Use
  Company Number: US-MERCK-0510USA04373

PATIENT
  Age: 76 Year
  Sex: Female
  Weight: 84 kg

DRUGS (7)
  1. VIOXX [Suspect]
     Indication: ARTHRITIS
     Route: 048
     Dates: end: 20040901
  2. SYNTHROID [Concomitant]
     Route: 065
  3. NIFEDIPINE [Concomitant]
     Route: 065
  4. SLOW-K [Concomitant]
     Route: 065
  5. ACIPHEX [Concomitant]
     Route: 065
  6. MIACALCIN [Concomitant]
     Indication: OSTEOPOROSIS
     Route: 065
  7. PILOCARPINE [Concomitant]
     Indication: GLAUCOMA
     Route: 065

REACTIONS (19)
  - ANXIETY [None]
  - BALANCE DISORDER [None]
  - BASILAR ARTERY STENOSIS [None]
  - BREAST CELLULITIS [None]
  - CARDIAC FAILURE CONGESTIVE [None]
  - CAROTID ARTERY STENOSIS [None]
  - CEREBROVASCULAR ACCIDENT [None]
  - CONTUSION [None]
  - DEPRESSED MOOD [None]
  - EMPHYSEMA [None]
  - INTERVERTEBRAL DISC DEGENERATION [None]
  - JAW FRACTURE [None]
  - MYOCARDIAL INFARCTION [None]
  - OPEN WOUND [None]
  - PERIPHERAL ARTERY ANEURYSM [None]
  - PNEUMONIA [None]
  - PUBIC RAMI FRACTURE [None]
  - RHINITIS [None]
  - TRANSIENT ISCHAEMIC ATTACK [None]
